FAERS Safety Report 26040133 (Version 2)
Quarter: 2025Q4

REPORT INFORMATION
  Report Type: Spontaneous
  Country: US (occurrence: US)
  Receive Date: 20251113
  Receipt Date: 20251224
  Transmission Date: 20260118
  Serious: No
  Sender: TOLMAR
  Company Number: US-Tolmar-TLM-2025-08275

PATIENT

DRUGS (3)
  1. ELIGARD [Suspect]
     Active Substance: LEUPROLIDE ACETATE
     Indication: Prostate cancer
     Dosage: LOT NUMBER/EXPIRATION DATE:?BOX: 15369CUS/ 12-26?SYRINGE A: 15369AUS/ 1-27?SYRINGE B: 15369BUS/ 12-2
  2. ELIGARD [Suspect]
     Active Substance: LEUPROLIDE ACETATE
     Dosage: REPLACEMENT DOSE GIVEN
  3. DEVICE [Suspect]
     Active Substance: DEVICE
     Indication: Prostate cancer
     Dosage: LOT NUMBER/EXPIRATION DATE:?BOX: 15369CUS/ 12-26?SYRINGE A: 15369AUS/ 1-27?SYRINGE B: 15369BUS/ 12-2

REACTIONS (3)
  - Intercepted product preparation error [Unknown]
  - Device occlusion [Unknown]
  - Wrong technique in product usage process [Unknown]
